FAERS Safety Report 24782259 (Version 1)
Quarter: 2024Q4

REPORT INFORMATION
  Report Type: Spontaneous
  Country: US (occurrence: US)
  Receive Date: 20241227
  Receipt Date: 20241227
  Transmission Date: 20250114
  Serious: Yes (Other)
  Sender: UNKNOWN
  Company Number: US-KOANAAP-SML-US-2024-01262

PATIENT
  Sex: Male

DRUGS (6)
  1. DOCETAXEL [Suspect]
     Active Substance: DOCETAXEL
     Indication: Squamous cell carcinoma of head and neck
  2. DOCETAXEL [Suspect]
     Active Substance: DOCETAXEL
  3. CARBOPLATIN [Suspect]
     Active Substance: CARBOPLATIN
     Indication: Squamous cell carcinoma of head and neck
  4. CARBOPLATIN [Suspect]
     Active Substance: CARBOPLATIN
  5. CETUXIMAB [Suspect]
     Active Substance: CETUXIMAB
     Indication: Squamous cell carcinoma of head and neck
  6. DULIGOTUZUMAB [Concomitant]
     Active Substance: DULIGOTUZUMAB
     Indication: Product used for unknown indication
     Route: 042

REACTIONS (3)
  - Disease progression [Unknown]
  - Drug ineffective [Unknown]
  - Drug intolerance [Unknown]
